FAERS Safety Report 4357486-0 (Version None)
Quarter: 2004Q2

REPORT INFORMATION
  Report Type: 
  Country: None (occurrence: None)
  Receive Date: 20040510
  Receipt Date: 20040423
  Transmission Date: 20050107
  Serious: Yes (Hospitalization)
  Sender: FDA-Public Use
  Company Number: S04-FRA-01933-01

PATIENT
  Age: 71 Year
  Sex: Male

DRUGS (11)
  1. CITALOPRAM HYDROBROMIDE [Suspect]
     Indication: DEPRESSION
     Dosage: 1 TABLET PO
     Route: 048
  2. SINTROM [Suspect]
     Indication: ATRIAL FIBRILLATION
     Dosage: 5 MG QW PO
     Route: 048
     Dates: end: 20040324
  3. SINTROM [Suspect]
     Indication: CARDIAC FLUTTER
     Dosage: 5 MG QW PO
     Route: 048
     Dates: end: 20040324
  4. PLAVIX [Suspect]
     Dosage: 1 TABLET QD PO
     Route: 048
     Dates: end: 20040326
  5. TIAPRIDAL (TIAPRIDE) [Concomitant]
  6. ACETAMINOPHEN [Concomitant]
  7. RAMIPRIL [Concomitant]
  8. OXAZEPAM [Concomitant]
  9. MIXTARD HUMAN 70/30 [Concomitant]
  10. SECTRAL [Concomitant]
  11. LASIX [Concomitant]

REACTIONS (18)
  - ALCOHOLISM [None]
  - BACK PAIN [None]
  - CHILLS [None]
  - CONFUSIONAL STATE [None]
  - DEPRESSED LEVEL OF CONSCIOUSNESS [None]
  - DRUG INTERACTION [None]
  - EXTRAPYRAMIDAL DISORDER [None]
  - FALL [None]
  - GENERAL PHYSICAL HEALTH DETERIORATION [None]
  - HAEMATOCRIT INCREASED [None]
  - HAEMOGLOBIN DECREASED [None]
  - INTERNATIONAL NORMALISED RATIO DECREASED [None]
  - MASS [None]
  - MOTOR DYSFUNCTION [None]
  - NERVOUS SYSTEM DISORDER [None]
  - PYREXIA [None]
  - SENSORY DISTURBANCE [None]
  - SUBDURAL HAEMATOMA [None]
